FAERS Safety Report 8314031-2 (Version None)
Quarter: 2012Q2

REPORT INFORMATION
  Report Type: 
  Country: None (occurrence: None)
  Receive Date: 20120426
  Receipt Date: 20120423
  Transmission Date: 20120825
  Serious: Yes (Other)
  Sender: FDA-Public Use
  Company Number: US-PFIZER INC-2012100382

PATIENT
  Sex: Female
  Weight: 68.027 kg

DRUGS (6)
  1. DICLOFENAC [Concomitant]
     Indication: MUSCLE SPASMS
     Dosage: UNK
  2. LYRICA [Suspect]
     Indication: PARAPLEGIA
     Dosage: 100 MG, 3X/DAY
     Route: 048
     Dates: start: 20120301
  3. ESTRADIOL [Concomitant]
     Indication: MENOPAUSE
     Dosage: UNK
  4. MORPHINE [Concomitant]
     Dosage: UNK
  5. OXYBUTYNIN [Concomitant]
     Indication: BLADDER DISORDER
     Dosage: UNK
  6. LYRICA [Suspect]
     Indication: SPINAL CORD INJURY LUMBAR

REACTIONS (1)
  - PAIN [None]
